FAERS Safety Report 7103833-6 (Version None)
Quarter: 2010Q4

REPORT INFORMATION
  Report Type: 
  Country: None (occurrence: None)
  Receive Date: 20101115
  Receipt Date: 20101111
  Transmission Date: 20110411
  Serious: Yes (Other)
  Sender: FDA-Public Use
  Company Number: JP-PFIZER INC-2010145200

PATIENT
  Age: 62 Year
  Sex: Male

DRUGS (4)
  1. LYRICA [Suspect]
     Indication: PAIN
     Dosage: 150MG DAILY
     Route: 048
     Dates: start: 20101104, end: 20101111
  2. LYRICA [Suspect]
     Indication: HYPOAESTHESIA
  3. VOLTAREN [Concomitant]
     Dosage: UNK
     Route: 054
  4. PREDNISOLONE [Concomitant]
     Dosage: UNK

REACTIONS (1)
  - TACHYCARDIA [None]
